FAERS Safety Report 21443141 (Version 1)
Quarter: 2022Q4

REPORT INFORMATION
  Report Type: Report from Study
  Country: CA (occurrence: CA)
  Receive Date: 20221012
  Receipt Date: 20221012
  Transmission Date: 20230113
  Serious: Yes (Other)
  Sender: FDA-Public Use
  Company Number: CA-JNJFOC-20210758259

PATIENT
  Age: 15 Year
  Sex: Female
  Weight: 80 kg

DRUGS (5)
  1. REMICADE [Suspect]
     Active Substance: INFLIXIMAB
     Indication: Colitis ulcerative
     Dosage: PATIENT STARTED REMICADE 10MG/KG 0,1,4 Q4 WEEKS
     Route: 042
     Dates: start: 20210726
  2. REMICADE [Suspect]
     Active Substance: INFLIXIMAB
     Route: 042
  3. REMICADE [Suspect]
     Active Substance: INFLIXIMAB
     Route: 042
  4. REMICADE [Suspect]
     Active Substance: INFLIXIMAB
     Dosage: ON 06-OCT-2022, RECEIVED 14TH INFLIXIMAB, RECOMBINANT INFUSION OF 800 MG AND PARTIAL MAYO WAS COMPLE
     Route: 041
  5. REMICADE [Suspect]
     Active Substance: INFLIXIMAB
     Dosage: OPTIMIZED TO 10 MG/KG EVERY 6 WEEKS
     Route: 042

REACTIONS (6)
  - Haemorrhage [Unknown]
  - Haematochezia [Not Recovered/Not Resolved]
  - Drug level increased [Unknown]
  - General physical health deterioration [Unknown]
  - Abdominal pain [Unknown]
  - Off label use [Unknown]

NARRATIVE: CASE EVENT DATE: 20210726
